FAERS Safety Report 11820199 (Version 1)
Quarter: 2015Q4

REPORT INFORMATION
  Report Type: Spontaneous
  Country: FR (occurrence: FR)
  Receive Date: 20151210
  Receipt Date: 20151210
  Transmission Date: 20160305
  Serious: Yes (Other)
  Sender: FDA-Public Use
  Company Number: FR-HOSPIRA-3097383

PATIENT
  Age: 78 Year
  Sex: Female

DRUGS (1)
  1. ATRACURIUM HOSPIRA [Suspect]
     Active Substance: ATRACURIUM
     Indication: PRODUCT USED FOR UNKNOWN INDICATION
     Route: 042

REACTIONS (1)
  - Drug effect prolonged [Recovered/Resolved]
